FAERS Safety Report 4717661-X (Version None)
Quarter: 2005Q3

REPORT INFORMATION
  Report Type: 
  Country: None (occurrence: None)
  Receive Date: 20050713
  Receipt Date: 20050429
  Transmission Date: 20060218
  Serious: Yes (Other)
  Sender: FDA-Public Use
  Company Number: 344457

PATIENT
  Age: 40 Year
  Sex: Male
  Weight: 70.3 kg

DRUGS (5)
  1. FUZEON [Suspect]
     Indication: HIV INFECTION
     Dosage: 90 MG 2 PER DAY SUBCUTANEOUS
     Route: 058
     Dates: start: 20030703
  2. HIVID [Concomitant]
  3. VIREAD [Concomitant]
  4. EPIVIR [Concomitant]
  5. ZITHROMAX [Concomitant]

REACTIONS (14)
  - COUGH [None]
  - DIZZINESS [None]
  - DYSKINESIA [None]
  - INJECTION SITE DISCOMFORT [None]
  - INJECTION SITE JOINT PAIN [None]
  - INJECTION SITE PAIN [None]
  - INJECTION SITE REACTION [None]
  - MUSCLE SPASMS [None]
  - PRURITUS [None]
  - RASH [None]
  - SKIN DISORDER [None]
  - SKIN PAPILLOMA [None]
  - TENDERNESS [None]
  - TIC [None]
